FAERS Safety Report 4915762-4 (Version None)
Quarter: 2006Q1

REPORT INFORMATION
  Report Type: 
  Country: None (occurrence: None)
  Receive Date: 20060113
  Receipt Date: 20051004
  Transmission Date: 20060701
  Serious: No
  Sender: FDA-Public Use
  Company Number: 2005SP003335

PATIENT
  Age: 76 Year
  Sex: Female

DRUGS (10)
  1. LUNESTA [Suspect]
     Indication: INSOMNIA
     Dosage: SEE IMAGE
     Route: 048
     Dates: start: 20050601, end: 20051003
  2. LUNESTA [Suspect]
     Indication: INSOMNIA
     Dosage: SEE IMAGE
     Route: 048
     Dates: start: 20051007, end: 20051016
  3. LUNESTA [Suspect]
     Indication: INSOMNIA
     Dosage: SEE IMAGE
     Route: 048
     Dates: start: 20051017
  4. LASIX [Concomitant]
  5. VICODIN [Concomitant]
  6. ZOLOFT [Concomitant]
  7. LOPERAMIDE [Concomitant]
  8. IRON [Concomitant]
  9. DIGOXIN [Concomitant]
  10. LABETALOL HCL [Concomitant]

REACTIONS (2)
  - AFFECT LABILITY [None]
  - AGITATION [None]
